FAERS Safety Report 21293309 (Version 1)
Quarter: 2022Q3

REPORT INFORMATION
  Report Type: Spontaneous
  Country: TR (occurrence: TR)
  Receive Date: 20220905
  Receipt Date: 20220905
  Transmission Date: 20221027
  Serious: Yes (Hospitalization, Other)
  Sender: FDA-Public Use
  Company Number: TR-Accord-276371

PATIENT
  Age: 10 Month
  Sex: Male
  Weight: 6 kg

DRUGS (3)
  1. TACROLIMUS [Suspect]
     Active Substance: TACROLIMUS
     Indication: Liver transplant rejection
     Dosage: DOSE WAS SKIPPED. ON THE 7TH DAY, A SINGLE DOSE OF 0.25 MG/DAY WAS GIVEN, 0.125 MG/KG/DAY
  2. MYCOPHENOLATE MOFETIL [Concomitant]
     Active Substance: MYCOPHENOLATE MOFETIL
     Indication: Liver transplant rejection
     Dosage: 530 MG/M2 /DAY
  3. METHYLPREDNISOLONE [Concomitant]
     Active Substance: METHYLPREDNISOLONE
     Indication: Liver transplant rejection
     Dosage: 0.3 MG/KG/DAY

REACTIONS (3)
  - Chorea [Recovered/Resolved]
  - Encephalopathy [Recovered/Resolved]
  - Generalised tonic-clonic seizure [Recovered/Resolved]
